FAERS Safety Report 4269886-8 (Version None)
Quarter: 2004Q1

REPORT INFORMATION
  Report Type: 
  Country: None (occurrence: None)
  Receive Date: 20040112
  Receipt Date: 20040112
  Transmission Date: 20041129
  Serious: Yes (Hospitalization)
  Sender: FDA-Public Use
  Company Number: None

PATIENT
  Age: 79 Year
  Sex: Male

DRUGS (9)
  1. LISINOPRIL [Suspect]
     Indication: HYPERTENSION
     Dosage: 40 MG QD
     Dates: start: 19991001
  2. HYDROCHLOROTHIAZIDE [Suspect]
     Indication: HYPERTENSION
     Dosage: 12.5 MG QD
     Dates: start: 20030812
  3. MEGESTROL [Concomitant]
  4. PROMAZINE HCL [Concomitant]
  5. TERAZOSIN HCL [Concomitant]
  6. ZOCOR [Concomitant]
  7. AMITRIPTYLINE HCL [Concomitant]
  8. AMIODARONE HCL [Concomitant]
  9. SERTRALINE HCL [Concomitant]

REACTIONS (1)
  - RENAL FAILURE ACUTE [None]
